FAERS Safety Report 7819120-4 (Version None)
Quarter: 2011Q4

REPORT INFORMATION
  Report Type: 
  Country: None (occurrence: None)
  Receive Date: 20111018
  Receipt Date: 20111010
  Transmission Date: 20120403
  Serious: Yes (Other)
  Sender: FDA-Public Use
  Company Number: PHHY2011GB79111

PATIENT
  Age: 22 Year
  Sex: Female
  Weight: 159 kg

DRUGS (2)
  1. SERTRALINE HYDROCHLORIDE [Concomitant]
     Dosage: 100 MG, QD
  2. RISPERIDONE [Suspect]
     Dosage: 1 MG, QD

REACTIONS (8)
  - CSF PRESSURE INCREASED [None]
  - DIPLOPIA [None]
  - VITH NERVE PARALYSIS [None]
  - BENIGN INTRACRANIAL HYPERTENSION [None]
  - WEIGHT INCREASED [None]
  - HEADACHE [None]
  - NAUSEA [None]
  - VISION BLURRED [None]
